FAERS Safety Report 18335541 (Version 2)
Quarter: 2020Q4

REPORT INFORMATION
  Report Type: Report from Study
  Country: US (occurrence: US)
  Receive Date: 20201001
  Receipt Date: 20201012
  Transmission Date: 20210113
  Serious: Yes (Hospitalization)
  Sender: FDA-Public Use
  Company Number: US-JNJFOC-20200935000

PATIENT
  Age: 76 Year
  Sex: Male

DRUGS (2)
  1. UPTRAVI [Suspect]
     Active Substance: SELEXIPAG
     Indication: ESSENTIAL HYPERTENSION
     Dosage: INITIAL DOSE 200 UG, TITRATED TO 800 UG
     Route: 048
     Dates: start: 20200618
  2. ELIQUIS [Concomitant]
     Active Substance: APIXABAN

REACTIONS (1)
  - Rectal ulcer haemorrhage [Unknown]

NARRATIVE: CASE EVENT DATE: 20200913
